FAERS Safety Report 7021873-2 (Version None)
Quarter: 2010Q3

REPORT INFORMATION
  Report Type: 
  Country: None (occurrence: None)
  Receive Date: 20100930
  Receipt Date: 20100917
  Transmission Date: 20110219
  Serious: Yes (Hospitalization)
  Sender: FDA-Public Use
  Company Number: US-CELGENEUS-163-21880-10080931

PATIENT
  Sex: Male

DRUGS (17)
  1. REVLIMID [Suspect]
     Indication: MULTIPLE MYELOMA
     Route: 048
     Dates: start: 20100727
  2. DIOVAN [Concomitant]
     Indication: HYPERTENSION
     Route: 048
  3. DIOVAN [Concomitant]
     Indication: CORONARY ARTERY DISEASE
  4. GLIPIZIDE [Concomitant]
     Route: 048
  5. ACTOS [Concomitant]
     Route: 048
  6. METFORMIN HCL [Concomitant]
     Route: 048
  7. METOPROLOL TARTRATE [Concomitant]
     Indication: HYPERTENSION
     Dosage: 1/2
     Route: 048
  8. METOPROLOL TARTRATE [Concomitant]
  9. ASPIRIN [Concomitant]
     Route: 048
  10. NIFEDIPINE [Concomitant]
     Route: 048
  11. NIFEDIPINE [Concomitant]
     Indication: HYPERTENSION
  12. SIMVASTATIN [Concomitant]
     Route: 048
  13. FISH OIL [Concomitant]
     Indication: PRODUCT USED FOR UNKNOWN INDICATION
     Route: 048
  14. MULTI-VITAMINS [Concomitant]
     Indication: PRODUCT USED FOR UNKNOWN INDICATION
     Route: 048
  15. CYANOCOBALAMIN [Concomitant]
     Route: 030
     Dates: start: 20100512, end: 20100809
  16. DEXAMETHASONE [Concomitant]
     Indication: MULTIPLE MYELOMA
     Route: 048
     Dates: start: 20100727
  17. ZOLEDRONIC ACID [Concomitant]
     Indication: MULTIPLE MYELOMA
     Route: 051
     Dates: start: 20100809

REACTIONS (4)
  - ABDOMINAL DISCOMFORT [None]
  - DIARRHOEA [None]
  - INCORRECT DOSE ADMINISTERED [None]
  - NEUTROPENIA [None]
